FAERS Safety Report 5638914-7 (Version None)
Quarter: 2008Q1

REPORT INFORMATION
  Report Type: 
  Country: None (occurrence: None)
  Receive Date: 20080225
  Receipt Date: 20080225
  Transmission Date: 20080703
  Serious: Yes (Life-Threatening)
  Sender: FDA-Public Use
  Company Number: None

PATIENT
  Age: 69 Year
  Sex: Male
  Weight: 97.5234 kg

DRUGS (1)
  1. VYTORIN [Suspect]
     Indication: BLOOD CHOLESTEROL
     Dosage: TABLET DAILY PO
     Route: 048
     Dates: start: 20050501, end: 20080115

REACTIONS (2)
  - NO THERAPEUTIC RESPONSE [None]
  - UNEVALUABLE EVENT [None]
